FAERS Safety Report 7985353-X (Version None)
Quarter: 2011Q4

REPORT INFORMATION
  Report Type: 
  Country: None (occurrence: None)
  Receive Date: 20111216
  Receipt Date: 20111107
  Transmission Date: 20120403
  Serious: No
  Sender: FDA-Public Use
  Company Number: US-ABBOTT-11P-163-0871967-00

PATIENT
  Sex: Male
  Weight: 113.5 kg

DRUGS (15)
  1. NOVOLOG [Concomitant]
     Indication: DIABETES MELLITUS
  2. FLUOXETINE [Concomitant]
     Indication: DEPRESSION
  3. LISINOPRIL [Concomitant]
     Indication: HYPERTENSION
  4. AMLODIPINE [Concomitant]
     Indication: HYPERTENSION
  5. ALPRAZOLAM [Concomitant]
     Indication: ANXIETY
  6. LIPITOR [Concomitant]
     Indication: BLOOD CHOLESTEROL INCREASED
  7. KLOR-CHON [Concomitant]
     Indication: MINERAL SUPPLEMENTATION
  8. METFORMIN HCL [Concomitant]
     Indication: DIABETES MELLITUS
  9. LEVAMIRE PEN [Concomitant]
     Indication: DIABETES MELLITUS
  10. LEXAPRO [Concomitant]
     Indication: DEPRESSION
  11. TRILIPIX [Suspect]
     Indication: BLOOD TRIGLYCERIDES INCREASED
     Dates: start: 20110901
  12. ZOCOR [Concomitant]
     Indication: BLOOD CHOLESTEROL INCREASED
  13. SYNTHROID [Concomitant]
     Indication: HYPOTHYROIDISM
  14. METOPROLOL TARTRATE [Concomitant]
     Indication: HYPERTENSION
  15. ASPIRIN [Concomitant]
     Indication: PROPHYLAXIS

REACTIONS (1)
  - MYALGIA [None]
